FAERS Safety Report 6509039-3 (Version None)
Quarter: 2009Q4

REPORT INFORMATION
  Report Type: 
  Country: None (occurrence: None)
  Receive Date: 20091221
  Receipt Date: 20090908
  Transmission Date: 20100525
  Serious: No
  Sender: FDA-Public Use
  Company Number: US-ASTRAZENECA-2009SE12056

PATIENT
  Sex: Female

DRUGS (3)
  1. CRESTOR [Suspect]
     Indication: BLOOD CHOLESTEROL INCREASED
     Route: 048
     Dates: start: 20090701
  2. CRESTOR [Suspect]
     Route: 048
     Dates: start: 20090901
  3. PRAVASTATIN SODIUM [Suspect]
     Indication: BLOOD CHOLESTEROL INCREASED
     Dates: start: 20090801

REACTIONS (5)
  - ARTHRALGIA [None]
  - FATIGUE [None]
  - HEADACHE [None]
  - PAIN IN EXTREMITY [None]
  - PRURITUS [None]
